FAERS Safety Report 8086342-X (Version None)
Quarter: 2012Q1

REPORT INFORMATION
  Report Type: 
  Country: None (occurrence: None)
  Receive Date: 20120128
  Receipt Date: 20110509
  Transmission Date: 20120608
  Serious: No
  Sender: FDA-Public Use
  Company Number: US-ABBOTT-11P-163-0724524-00

PATIENT
  Age: 75 Year
  Sex: Female

DRUGS (8)
  1. ARIMIDEX [Concomitant]
     Indication: BREAST CANCER
  2. TYLENOL-500 [Concomitant]
     Indication: PAIN IN EXTREMITY
     Dosage: AS NEEDED
  3. SYNTHROID [Concomitant]
     Indication: HYPOTHYROIDISM
  4. HUMIRA [Suspect]
     Indication: COLITIS ULCERATIVE
     Dates: start: 20101101
  5. ASPIRIN [Concomitant]
     Indication: PRODUCT USED FOR UNKNOWN INDICATION
  6. SIMVASTATIN [Concomitant]
     Indication: BLOOD CHOLESTEROL INCREASED
     Dosage: AT BEDTIME
  7. ASACOL [Concomitant]
     Indication: PRODUCT USED FOR UNKNOWN INDICATION
  8. ICAPS [Concomitant]
     Indication: EYE DISORDER

REACTIONS (1)
  - INJECTION SITE PAIN [None]
